FAERS Safety Report 5040673-6 (Version None)
Quarter: 2006Q2

REPORT INFORMATION
  Report Type: 
  Country: None (occurrence: None)
  Receive Date: 20060629
  Receipt Date: 20060629
  Transmission Date: 20061013
  Serious: Yes (Hospitalization)
  Sender: FDA-Public Use
  Company Number: None

PATIENT
  Age: 59 Year
  Sex: Male
  Weight: 62 kg

DRUGS (2)
  1. ZOSYN [Suspect]
     Dosage: 3.375 Q 6 H
     Dates: start: 20060328, end: 20060401
  2. ZANTAC [Suspect]
     Dosage: 50 IV BID
     Route: 042
     Dates: start: 20060328, end: 20060401

REACTIONS (1)
  - PLATELET COUNT DECREASED [None]
